FAERS Safety Report 12277382 (Version 1)
Quarter: 2016Q2

REPORT INFORMATION
  Report Type: Spontaneous
  Country: DE (occurrence: DE)
  Receive Date: 20160418
  Receipt Date: 20160418
  Transmission Date: 20160815
  Serious: Yes (Death)
  Sender: FDA-Public Use
  Company Number: GXKR2016DE001902

PATIENT

DRUGS (4)
  1. TRANSTEC [Concomitant]
     Active Substance: BUPRENORPHINE
     Indication: ORTHOPAEDIC PROCEDURE
     Dosage: DAILY DOSE: 1 DF DOSAGE FORM EVERY WEEKS
     Route: 062
     Dates: start: 201410
  2. OXAZEPAM. [Suspect]
     Active Substance: OXAZEPAM
     Indication: RESTLESSNESS
     Dosage: UNK UKN, UNK
     Route: 048
     Dates: start: 20160211
  3. CIPROFLOXACIN. [Suspect]
     Active Substance: CIPROFLOXACIN
     Indication: URINARY TRACT INFECTION
     Dosage: DAILY DOSE: 500 MG MILLGRAM(S) EVERY DAYS
     Route: 048
     Dates: start: 20160219, end: 20160222
  4. PAROXETINE. [Suspect]
     Active Substance: PAROXETINE
     Indication: DEPRESSION
     Route: 048
     Dates: start: 20160211

REACTIONS (1)
  - Completed suicide [Fatal]

NARRATIVE: CASE EVENT DATE: 20160224
